FAERS Safety Report 6278481-0 (Version None)
Quarter: 2009Q3

REPORT INFORMATION
  Report Type: 
  Country: None (occurrence: None)
  Receive Date: 20090721
  Receipt Date: 20090715
  Transmission Date: 20100115
  Serious: Yes (Hospitalization)
  Sender: FDA-Public Use
  Company Number: 2009SP015589

PATIENT
  Age: 71 Year
  Sex: Female

DRUGS (5)
  1. NASONEX [Suspect]
     Indication: INFLUENZA
     Dosage: NAS
     Route: 045
     Dates: start: 20090331
  2. AUGMENTIN [Suspect]
     Indication: SINUSITIS
     Dosage: PO
     Route: 048
     Dates: start: 20090504, end: 20090512
  3. SOLUPRED (PREDNISOLONE SODIUM SULFOBENZOATE) [Suspect]
     Indication: SINUSITIS
     Dosage: PO
     Route: 048
     Dates: start: 20090504, end: 20090509
  4. PRIMALAN (MEQUITAZINE) [Suspect]
     Indication: HYPERSENSITIVITY
     Dosage: PO
     Route: 048
     Dates: start: 20090519, end: 20090605
  5. BETASERC (BETAHISTINE HYDROCHLORIDE) [Suspect]
     Indication: INFLUENZA
     Dosage: PO
     Route: 048
     Dates: start: 20090331

REACTIONS (3)
  - HEPATITIS CHOLESTATIC [None]
  - LYMPHADENOPATHY [None]
  - WEIGHT DECREASED [None]
